FAERS Safety Report 5564677-X (Version None)
Quarter: 2007Q4

REPORT INFORMATION
  Report Type: 
  Country: None (occurrence: None)
  Receive Date: 20071218
  Receipt Date: 20071022
  Transmission Date: 20080405
  Serious: Yes (Hospitalization, Other)
  Sender: FDA-Public Use
  Company Number: US-PURDUE-USA_2007_0030196

PATIENT
  Age: 52 Year
  Sex: Male
  Weight: 72 kg

DRUGS (5)
  1. VALIUM [Concomitant]
     Dosage: 20 MG, DAILY
  2. LORTAB [Concomitant]
     Dosage: 10 MG, QID
  3. DURAGESIC-100 [Concomitant]
     Dosage: 75 MG, UNK
     Route: 062
  4. ELAVIL [Suspect]
  5. OXYCONTIN [Suspect]
     Indication: BACK DISORDER
     Dosage: 40 MG, SEE TEXT
     Dates: start: 19971030, end: 20010502

REACTIONS (9)
  - AMNESIA [None]
  - DRUG DEPENDENCE [None]
  - DRUG WITHDRAWAL SYNDROME [None]
  - HYPERTENSION [None]
  - INSOMNIA [None]
  - INTENTIONAL OVERDOSE [None]
  - MENTAL DISORDER [None]
  - SUICIDE ATTEMPT [None]
  - VISUAL ACUITY REDUCED [None]
